FAERS Safety Report 16686342 (Version 1)
Quarter: 2019Q3

REPORT INFORMATION
  Report Type: Spontaneous
  Country: US (occurrence: US)
  Receive Date: 20190809
  Receipt Date: 20190809
  Transmission Date: 20191004
  Serious: Yes (Other)
  Sender: FDA-Public Use
  Company Number: US-APOTEX-2019AP019790

PATIENT
  Age: 60 Year
  Sex: Male

DRUGS (14)
  1. DIVALPROEX [Suspect]
     Active Substance: DIVALPROEX SODIUM
     Dosage: 2500 MG, Q.H.S.
     Route: 065
     Dates: start: 2011
  2. QUETIAPINE. [Suspect]
     Active Substance: QUETIAPINE
     Indication: PSYCHIATRIC SYMPTOM
     Dosage: 50 MG, BID
     Route: 065
  3. QUETIAPINE. [Suspect]
     Active Substance: QUETIAPINE
     Dosage: 200 MG, BID
     Route: 065
  4. LAMOTRIGINE. [Suspect]
     Active Substance: LAMOTRIGINE
     Indication: PSYCHIATRIC SYMPTOM
     Dosage: 100 MG, UNK (DAILY)
     Route: 065
  5. OXCARBAZEPINE. [Concomitant]
     Active Substance: OXCARBAZEPINE
     Indication: PSYCHIATRIC SYMPTOM
     Dosage: 600 MG, BID
     Route: 065
  6. HYDROXYZINE [Concomitant]
     Active Substance: HYDROXYZINE HYDROCHLORIDE
     Indication: INSOMNIA
  7. DIVALPROEX [Suspect]
     Active Substance: DIVALPROEX SODIUM
     Indication: SUICIDAL IDEATION
     Dosage: 500 MG, BID
     Route: 065
     Dates: end: 201611
  8. DIVALPROEX [Suspect]
     Active Substance: DIVALPROEX SODIUM
     Dosage: 3000 MG, Q.H.S.
     Route: 065
     Dates: start: 2009
  9. OXCARBAZEPINE. [Concomitant]
     Active Substance: OXCARBAZEPINE
     Dosage: 900 MG, BID
     Route: 065
  10. HYDROXYZINE [Concomitant]
     Active Substance: HYDROXYZINE HYDROCHLORIDE
     Indication: ANXIETY
     Dosage: 50 MG, QD (PRN)
     Route: 065
  11. DIVALPROEX [Suspect]
     Active Substance: DIVALPROEX SODIUM
     Indication: DEPRESSED MOOD
     Dosage: 1000 MG, BID
     Route: 065
     Dates: start: 2005
  12. CITALOPRAM [Concomitant]
     Active Substance: CITALOPRAM HYDROBROMIDE
  13. BUSPIRONE [Concomitant]
     Active Substance: BUSPIRONE HYDROCHLORIDE
     Indication: ANXIETY
  14. BUSPIRONE [Concomitant]
     Active Substance: BUSPIRONE HYDROCHLORIDE
     Indication: DEPRESSED MOOD
     Dosage: UNK
     Route: 065
     Dates: start: 2010

REACTIONS (7)
  - Anger [Unknown]
  - Autoscopy [Unknown]
  - Treatment noncompliance [Unknown]
  - Pancreatitis [Unknown]
  - Condition aggravated [Unknown]
  - Irritability [Unknown]
  - Sedation [Unknown]

NARRATIVE: CASE EVENT DATE: 2013
